FAERS Safety Report 4772116-1 (Version None)
Quarter: 2005Q3

REPORT INFORMATION
  Report Type: 
  Country: None (occurrence: None)
  Receive Date: 20050919
  Receipt Date: 20050722
  Transmission Date: 20060218
  Serious: Yes (Other)
  Sender: FDA-Public Use
  Company Number: JP-RB-1898-2005

PATIENT
  Sex: Female

DRUGS (12)
  1. BUPRENORPHINE HCL [Suspect]
     Indication: SEDATIVE THERAPY
     Route: 042
     Dates: start: 20041124, end: 20041212
  2. BUPRENORPHINE HCL [Suspect]
     Dosage: DOSAGE UNKNOWN
     Route: 042
     Dates: start: 20041213, end: 20041217
  3. BUPRENORPHINE HCL [Suspect]
     Route: 042
     Dates: start: 20041218
  4. MIDAZOLAM [Suspect]
     Indication: SEDATIVE THERAPY
     Dosage: UNKNOWN DOSAGE
     Route: 042
     Dates: start: 20041124, end: 20041212
  5. MIDAZOLAM [Suspect]
     Dosage: UNKNOWN DOSAGE
     Route: 042
     Dates: start: 20041213, end: 20041217
  6. MIDAZOLAM [Suspect]
     Dosage: UNKNOWN DOSAGE
     Route: 042
     Dates: start: 20041218
  7. VECURONIUM BROMIDE [Concomitant]
     Indication: SEDATIVE THERAPY
     Dosage: UNKNOWN DOSAGE
     Route: 042
     Dates: start: 20041124
  8. OLPRINONE HYDROCHLORIDE [Concomitant]
     Indication: CARDIAC FAILURE
     Dosage: UNKNOWN DOSAGE
     Route: 042
     Dates: start: 20041124
  9. DOPAMINE HCL [Concomitant]
     Indication: CARDIAC FAILURE
     Dosage: UNKNOWN DOSAGE
     Route: 042
     Dates: start: 20041218
  10. DOBUTAMINE HCL [Concomitant]
     Indication: CARDIAC FAILURE
     Dosage: UNKNOWN DOSAGE
     Route: 042
     Dates: start: 20041218
  11. LIDOCAINE [Concomitant]
     Indication: ARRHYTHMIA
     Dosage: UNKNOWN DOSAGE
     Route: 042
     Dates: start: 20041218
  12. MEDICINALPRODUCT NOT SPECIFIED BY SENDER [Concomitant]

REACTIONS (7)
  - BLOOD PRESSURE DECREASED [None]
  - CARDIOMYOPATHY [None]
  - DRUG WITHDRAWAL SYNDROME [None]
  - HYPERHIDROSIS [None]
  - TACHYCARDIA [None]
  - VENTRICULAR EXTRASYSTOLES [None]
  - WEIGHT DECREASED [None]
